FAERS Safety Report 7809881-2 (Version None)
Quarter: 2011Q4

REPORT INFORMATION
  Report Type: 
  Country: None (occurrence: None)
  Receive Date: 20111012
  Receipt Date: 20111003
  Transmission Date: 20120403
  Serious: Yes (Death, Life-Threatening, Hospitalization)
  Sender: FDA-Public Use
  Company Number: FR-PFIZER INC-2011240199

PATIENT
  Age: 80 Year
  Sex: Male

DRUGS (8)
  1. PLAVIX [Interacting]
     Indication: PRODUCT USED FOR UNKNOWN INDICATION
     Dosage: 75 MG, DAILY
     Route: 048
  2. BISOPROLOL FUMARATE [Concomitant]
     Dosage: 5 MG, DAILY
     Route: 048
  3. NEXIUM [Concomitant]
     Indication: OESOPHAGITIS
     Dosage: 40 MG, DAILY
     Route: 048
     Dates: start: 20110914, end: 20110915
  4. FLUCONAZOLE [Interacting]
     Indication: PRODUCT USED FOR UNKNOWN INDICATION
     Dosage: 50 MG, DAILY
     Route: 048
     Dates: start: 20110101
  5. PREVISCAN [Interacting]
     Indication: PRODUCT USED FOR UNKNOWN INDICATION
     Dosage: 20 MG, UNK
     Route: 048
     Dates: end: 20110915
  6. ZOCOR [Concomitant]
     Dosage: 20 MG, DAILY
     Route: 048
  7. LANTUS [Concomitant]
     Dosage: 22 IU, DAILY
     Route: 058
  8. CORDARONE [Suspect]
     Indication: ATRIAL FIBRILLATION
     Dosage: 200 MG, 3X/DAY
     Route: 048
     Dates: start: 20110909

REACTIONS (3)
  - POTENTIATING DRUG INTERACTION [None]
  - SHOCK HAEMORRHAGIC [None]
  - GASTROINTESTINAL HAEMORRHAGE [None]
